FAERS Safety Report 11515551 (Version 3)
Quarter: 2015Q4

REPORT INFORMATION
  Report Type: Spontaneous
  Country: US (occurrence: US)
  Receive Date: 20150916
  Receipt Date: 20151006
  Transmission Date: 20160304
  Serious: Yes (Other)
  Sender: FDA-Public Use
  Company Number: CHPA2015US010266

PATIENT
  Age: 88 Year
  Sex: Female

DRUGS (3)
  1. 4 WAY SALINE MOISTURIZING MIST [Suspect]
     Active Substance: SODIUM CHLORIDE
     Indication: NASAL CONGESTION
     Dosage: 1 SPRAY IN EACH NOSTRIL, PRN
     Route: 045
  2. 4-WAY FAST NASAL SPRAY [Concomitant]
     Indication: NASAL CONGESTION
     Dosage: 1 SPRAY IN EACH NOSTRIL
     Route: 045
  3. 4 WAY SALINE MOISTURIZING MIST [Suspect]
     Active Substance: SODIUM CHLORIDE
     Dosage: 1 SPRAY IN EACH NOSTRIL, PRN
     Route: 045

REACTIONS (7)
  - Pain [Not Recovered/Not Resolved]
  - Cerebrovascular accident [Recovered/Resolved]
  - Expired product administered [Unknown]
  - Abasia [Recovered/Resolved]
  - Incorrect dose administered [Unknown]
  - Paralysis [Not Recovered/Not Resolved]
  - Balance disorder [Unknown]

NARRATIVE: CASE EVENT DATE: 2008
